FAERS Safety Report 9097292 (Version 3)
Quarter: 2013Q1

REPORT INFORMATION
  Report Type: Report from Study
  Country: DE (occurrence: DE)
  Receive Date: 20130212
  Receipt Date: 20130311
  Transmission Date: 20140127
  Serious: Yes (Hospitalization)
  Sender: FDA-Public Use
  Company Number: DE-ROCHE-1187892

PATIENT
  Age: 73 Year
  Sex: Male

DRUGS (4)
  1. RITUXIMAB [Suspect]
     Indication: NON-HODGKIN^S LYMPHOMA
     Dosage: LAST DATE PRIOR SAE: 03/JAN/2013
     Route: 042
     Dates: start: 20110401
  2. RITUXIMAB [Suspect]
     Indication: MANTLE CELL LYMPHOMA
  3. BENDAMUSTINE [Suspect]
     Indication: NON-HODGKIN^S LYMPHOMA
     Dosage: LAST DOSE PRIOR SAE: 30/AUG/2011
     Route: 042
     Dates: start: 20110402
  4. BENDAMUSTINE [Suspect]
     Indication: MANTLE CELL LYMPHOMA

REACTIONS (1)
  - Subdural haematoma [Recovered/Resolved]
